FAERS Safety Report 9105639 (Version 2)
Quarter: 2013Q1

REPORT INFORMATION
  Report Type: Spontaneous
  Country: US (occurrence: US)
  Receive Date: 20130221
  Receipt Date: 20130305
  Transmission Date: 20140127
  Serious: Yes (Hospitalization)
  Sender: FDA-Public Use
  Company Number: US-GLAXOSMITHKLINE-A0996432A

PATIENT
  Age: 59 Year
  Sex: Female
  Weight: 181.8 kg

DRUGS (2)
  1. AVANDIA [Suspect]
     Indication: DIABETES MELLITUS
     Dosage: 2MG UNKNOWN
     Route: 048
  2. AVANDAMET [Suspect]
     Indication: DIABETES MELLITUS
     Route: 048

REACTIONS (10)
  - Cardiac failure congestive [Not Recovered/Not Resolved]
  - Diabetic complication [Unknown]
  - Infection [Unknown]
  - Asthenia [Unknown]
  - Dyspnoea [Unknown]
  - Mobility decreased [Unknown]
  - Depression [Unknown]
  - Confusional state [Unknown]
  - Cardiac disorder [Unknown]
  - Urinary incontinence [Unknown]
